FAERS Safety Report 19007521 (Version 6)
Quarter: 2021Q2

REPORT INFORMATION
  Report Type: Report from Study
  Country: CA (occurrence: CA)
  Receive Date: 20210315
  Receipt Date: 20210629
  Transmission Date: 20210717
  Serious: Yes (Other)
  Sender: FDA-Public Use
  Company Number: CA-JNJFOC-20210316782

PATIENT
  Age: 9 Year
  Sex: Male
  Weight: 41.1 kg

DRUGS (7)
  1. METHOTREXATE. [Concomitant]
     Active Substance: METHOTREXATE
     Indication: CROHN^S DISEASE
     Route: 048
     Dates: start: 20210528
  2. METHOTREXATE. [Concomitant]
     Active Substance: METHOTREXATE
     Route: 048
     Dates: start: 20210402, end: 20210402
  3. REMICADE [Suspect]
     Active Substance: INFLIXIMAB
     Dosage: 7.7MG/KG
     Route: 042
  4. REMICADE [Suspect]
     Active Substance: INFLIXIMAB
     Indication: CROHN^S DISEASE
     Dosage: SINCE 26?JAN?2021, THE PATIENT RECEIVED 3 DOSES OF 200MG @ 0?2?6 WKS?AS PER REPORT ON 22?JUN?2021,
     Route: 042
     Dates: start: 20210126
  5. METHOTREXATE. [Concomitant]
     Active Substance: METHOTREXATE
     Route: 048
     Dates: start: 20210430
  6. REMICADE [Suspect]
     Active Substance: INFLIXIMAB
     Dosage: ON 06?APR?2021, THE PATIENT RECEIVED 4TH 250 MG INFLIXIMAB, INFUSION.?ON 04?MAY?2021, THE PATIENT RE
     Route: 042
     Dates: start: 20210317
  7. PREDNISONE. [Concomitant]
     Active Substance: PREDNISONE
     Indication: PRODUCT USED FOR UNKNOWN INDICATION
     Route: 065

REACTIONS (7)
  - Diarrhoea [Not Recovered/Not Resolved]
  - Off label use [Unknown]
  - Product use issue [Unknown]
  - General physical health deterioration [Not Recovered/Not Resolved]
  - Anal incontinence [Not Recovered/Not Resolved]
  - Abdominal pain [Not Recovered/Not Resolved]
  - Rectal haemorrhage [Recovered/Resolved]

NARRATIVE: CASE EVENT DATE: 20210301
